FAERS Safety Report 13528126 (Version 1)
Quarter: 2017Q2

REPORT INFORMATION
  Report Type: Spontaneous
  Country: US (occurrence: US)
  Receive Date: 20170509
  Receipt Date: 20170509
  Transmission Date: 20170830
  Serious: No
  Sender: FDA-Public Use
  Company Number: US-BAUSCH-BL-2017-008786

PATIENT
  Sex: Male

DRUGS (1)
  1. RUCONEST [Suspect]
     Active Substance: HUMAN C1-ESTERASE INHIBITOR
     Indication: PRODUCT USED FOR UNKNOWN INDICATION
     Route: 063
     Dates: start: 201704

REACTIONS (2)
  - Exposure during breast feeding [Unknown]
  - No adverse event [Unknown]

NARRATIVE: CASE EVENT DATE: 201704
